FAERS Safety Report 10877882 (Version 2)
Quarter: 2015Q1

REPORT INFORMATION
  Report Type: Spontaneous
  Country: JP (occurrence: JP)
  Receive Date: 20150302
  Receipt Date: 20150320
  Transmission Date: 20150721
  Serious: Yes (Other)
  Sender: FDA-Public Use
  Company Number: JP-MYLANLABS-2015M1006416

PATIENT

DRUGS (4)
  1. OXALIPLATIN. [Suspect]
     Active Substance: OXALIPLATIN
     Indication: METASTASES TO LIVER
     Dosage: 85 MG/M2; 2 CYCLES, LATER DECREASED IN THE THIRD CYCLE
     Route: 065
     Dates: start: 200808
  2. FLUOROURACIL. [Concomitant]
     Active Substance: FLUOROURACIL
     Dosage: 400 MG/M2, TOTAL 3 CYCLES
     Route: 065
     Dates: start: 200808
  3. OXALIPLATIN. [Suspect]
     Active Substance: OXALIPLATIN
     Dosage: 68 MG/M2
     Route: 065
     Dates: start: 200808
  4. BEVACIZUMAB [Concomitant]
     Active Substance: BEVACIZUMAB
     Dosage: 5 MG/KG, TOTAL 3 CYCLES
     Dates: start: 200808

REACTIONS (6)
  - Haemoptysis [Unknown]
  - Neutropenia [Unknown]
  - Leukopenia [Unknown]
  - Acute respiratory distress syndrome [Recovered/Resolved]
  - Type IV hypersensitivity reaction [Unknown]
  - Nausea [Unknown]
